FAERS Safety Report 13472725 (Version 2)
Quarter: 2017Q3

REPORT INFORMATION
  Report Type: Spontaneous
  Country: US (occurrence: US)
  Receive Date: 20170424
  Receipt Date: 20170710
  Transmission Date: 20171127
  Serious: No
  Sender: FDA-Public Use
  Company Number: US-009507513-1703USA013057

PATIENT

DRUGS (32)
  1. VARIVAX [Suspect]
     Active Substance: VARICELLA-ZOSTER VIRUS STRAIN OKA/MERCK LIVE ANTIGEN
     Dates: start: 20170206, end: 20170206
  2. STERILE DILUENT [Concomitant]
     Active Substance: WATER
     Dosage: UNK
     Dates: start: 20170214
  3. STERILE DILUENT [Concomitant]
     Active Substance: WATER
     Dosage: UNK
     Dates: start: 20170216
  4. STERILE DILUENT [Concomitant]
     Active Substance: WATER
     Dosage: UNK
     Dates: start: 20170222
  5. VARIVAX [Suspect]
     Active Substance: VARICELLA-ZOSTER VIRUS STRAIN OKA/MERCK LIVE ANTIGEN
     Dates: start: 20170306, end: 20170306
  6. VARIVAX [Suspect]
     Active Substance: VARICELLA-ZOSTER VIRUS STRAIN OKA/MERCK LIVE ANTIGEN
     Dates: start: 20170307, end: 20170307
  7. VARIVAX [Suspect]
     Active Substance: VARICELLA-ZOSTER VIRUS STRAIN OKA/MERCK LIVE ANTIGEN
     Dates: start: 20170317, end: 20170317
  8. VARIVAX [Suspect]
     Active Substance: VARICELLA-ZOSTER VIRUS STRAIN OKA/MERCK LIVE ANTIGEN
     Dates: start: 20170321, end: 20170321
  9. STERILE DILUENT [Concomitant]
     Active Substance: WATER
     Dosage: UNK
     Dates: start: 20170308
  10. STERILE DILUENT [Concomitant]
     Active Substance: WATER
     Dosage: UNK
     Dates: start: 20170323
  11. VARIVAX [Suspect]
     Active Substance: VARICELLA-ZOSTER VIRUS STRAIN OKA/MERCK LIVE ANTIGEN
     Dates: start: 20170324, end: 20170324
  12. VARIVAX [Suspect]
     Active Substance: VARICELLA-ZOSTER VIRUS STRAIN OKA/MERCK LIVE ANTIGEN
     Dates: start: 20170207, end: 20170207
  13. VARIVAX [Suspect]
     Active Substance: VARICELLA-ZOSTER VIRUS STRAIN OKA/MERCK LIVE ANTIGEN
     Dates: start: 20170222, end: 20170222
  14. VARIVAX [Suspect]
     Active Substance: VARICELLA-ZOSTER VIRUS STRAIN OKA/MERCK LIVE ANTIGEN
     Dates: start: 20170313, end: 20170313
  15. STERILE DILUENT [Concomitant]
     Active Substance: WATER
     Dosage: UNK
     Dates: start: 20170203
  16. STERILE DILUENT [Concomitant]
     Active Substance: WATER
     Dosage: UNK
     Dates: start: 20170215
  17. STERILE DILUENT [Concomitant]
     Active Substance: WATER
     Dosage: UNK
     Dates: start: 20170224
  18. STERILE DILUENT [Concomitant]
     Active Substance: WATER
     Dosage: UNK
     Dates: start: 20170317
  19. VARIVAX [Suspect]
     Active Substance: VARICELLA-ZOSTER VIRUS STRAIN OKA/MERCK LIVE ANTIGEN
     Dates: start: 20170215, end: 20170215
  20. VARIVAX [Suspect]
     Active Substance: VARICELLA-ZOSTER VIRUS STRAIN OKA/MERCK LIVE ANTIGEN
     Dates: start: 20170224, end: 20170224
  21. STERILE DILUENT [Concomitant]
     Active Substance: WATER
     Dosage: UNK
     Dates: start: 20170207
  22. STERILE DILUENT [Concomitant]
     Active Substance: WATER
     Dosage: UNK
     Dates: start: 20170313
  23. STERILE DILUENT [Concomitant]
     Active Substance: WATER
     Dosage: UNK
     Dates: start: 20170324
  24. VARIVAX [Suspect]
     Active Substance: VARICELLA-ZOSTER VIRUS STRAIN OKA/MERCK LIVE ANTIGEN
     Indication: PROPHYLAXIS
     Dates: start: 20170203, end: 20170203
  25. VARIVAX [Suspect]
     Active Substance: VARICELLA-ZOSTER VIRUS STRAIN OKA/MERCK LIVE ANTIGEN
     Dates: start: 20170214, end: 20170214
  26. STERILE DILUENT [Concomitant]
     Active Substance: WATER
     Dosage: UNK
     Dates: start: 20170306
  27. STERILE DILUENT [Concomitant]
     Active Substance: WATER
     Dosage: UNK
     Dates: start: 20170321
  28. VARIVAX [Suspect]
     Active Substance: VARICELLA-ZOSTER VIRUS STRAIN OKA/MERCK LIVE ANTIGEN
     Dates: start: 20170216, end: 20170216
  29. VARIVAX [Suspect]
     Active Substance: VARICELLA-ZOSTER VIRUS STRAIN OKA/MERCK LIVE ANTIGEN
     Dates: start: 20170308, end: 20170308
  30. VARIVAX [Suspect]
     Active Substance: VARICELLA-ZOSTER VIRUS STRAIN OKA/MERCK LIVE ANTIGEN
     Dates: start: 20170323, end: 20170323
  31. STERILE DILUENT [Concomitant]
     Active Substance: WATER
     Dosage: UNK
     Dates: start: 20170206
  32. STERILE DILUENT [Concomitant]
     Active Substance: WATER
     Dosage: UNK
     Dates: start: 20170307

REACTIONS (2)
  - Product storage error [Unknown]
  - No adverse event [Unknown]

NARRATIVE: CASE EVENT DATE: 2017
